FAERS Safety Report 12438715 (Version 1)
Quarter: 2016Q2

REPORT INFORMATION
  Report Type: Spontaneous
  Country: HU (occurrence: HU)
  Receive Date: 20160606
  Receipt Date: 20160606
  Transmission Date: 20160815
  Serious: Yes (Life-Threatening, Hospitalization)
  Sender: FDA-Public Use
  Company Number: HU-JNJFOC-20160603015

PATIENT
  Age: 57 Year
  Sex: Female

DRUGS (15)
  1. PERINDOPRIL [Concomitant]
     Active Substance: PERINDOPRIL
     Route: 065
  2. CHINIDINE [Concomitant]
     Route: 065
  3. ALLOPURINOL. [Concomitant]
     Active Substance: ALLOPURINOL
     Route: 065
  4. INDAPAMIDE. [Concomitant]
     Active Substance: INDAPAMIDE
     Route: 065
  5. CLOPIDOGREL [Suspect]
     Active Substance: CLOPIDOGREL BISULFATE
     Indication: ATRIAL FIBRILLATION
     Route: 048
  6. PANTOPRAZOLE [Concomitant]
     Active Substance: PANTOPRAZOLE SODIUM
     Route: 065
  7. POTASSIUM CHLORIDE. [Concomitant]
     Active Substance: POTASSIUM CHLORIDE
     Route: 065
  8. MEDAZEPAM [Concomitant]
     Active Substance: MEDAZEPAM
     Route: 065
  9. DIGOXIN. [Concomitant]
     Active Substance: DIGOXIN
     Route: 065
  10. XARELTO [Suspect]
     Active Substance: RIVAROXABAN
     Indication: CEREBROVASCULAR ACCIDENT PROPHYLAXIS
     Route: 048
  11. ATORVASTATIN [Concomitant]
     Active Substance: ATORVASTATIN
     Route: 065
  12. XARELTO [Suspect]
     Active Substance: RIVAROXABAN
     Indication: ATRIAL FIBRILLATION
     Route: 048
  13. HEPARIN [Suspect]
     Active Substance: HEPARIN SODIUM
     Indication: THROMBOSIS PROPHYLAXIS
     Route: 065
  14. CLOPIDOGREL [Suspect]
     Active Substance: CLOPIDOGREL BISULFATE
     Indication: CEREBROVASCULAR ACCIDENT PROPHYLAXIS
     Route: 048
  15. NEBIVOLOL. [Concomitant]
     Active Substance: NEBIVOLOL
     Route: 065

REACTIONS (1)
  - Cardiac tamponade [Recovered/Resolved]
